FAERS Safety Report 10178854 (Version 1)
Quarter: 2014Q2

REPORT INFORMATION
  Report Type: Spontaneous
  Country: US (occurrence: US)
  Receive Date: 20140519
  Receipt Date: 20140519
  Transmission Date: 20141212
  Serious: No
  Sender: FDA-Public Use
  Company Number: US-BIOGENIDEC-2014BI040011

PATIENT
  Age: 36 Year
  Sex: Female

DRUGS (9)
  1. TECFIDERA [Suspect]
     Indication: MULTIPLE SCLEROSIS
     Route: 048
     Dates: start: 201308
  2. CELEBREX [Concomitant]
  3. ARTHRITIS PAIN FORMULA [Concomitant]
  4. RESTORIL [Concomitant]
  5. REQUIP [Concomitant]
  6. LYRICA [Concomitant]
  7. GABAPENTIN [Concomitant]
  8. SEROQUEL [Concomitant]
  9. LEXAPRO [Concomitant]

REACTIONS (4)
  - Blood glucose increased [Not Recovered/Not Resolved]
  - White blood cell count increased [Unknown]
  - Kidney infection [Unknown]
  - Nephrolithiasis [Unknown]
